FAERS Safety Report 8979685 (Version 3)
Quarter: 2013Q1

REPORT INFORMATION
  Report Type: Report from Study
  Country: US (occurrence: US)
  Receive Date: 20121221
  Receipt Date: 20130301
  Transmission Date: 20140127
  Serious: Yes (Hospitalization, Other)
  Sender: FDA-Public Use
  Company Number: US-ACTELION-A-US2012-76431

PATIENT
  Age: 50 Year
  Sex: Female

DRUGS (2)
  1. TRACLEER [Suspect]
     Indication: PULMONARY ARTERIAL HYPERTENSION
     Dosage: UNK
     Route: 048
  2. LASIX [Concomitant]

REACTIONS (9)
  - Pyrexia [Unknown]
  - White blood cell count decreased [Unknown]
  - Chronic hepatic failure [Unknown]
  - Renal impairment [Unknown]
  - Cardiac failure congestive [Unknown]
  - Hepatic cirrhosis [Unknown]
  - Dehydration [Unknown]
  - Confusional state [Unknown]
  - Oedema [Unknown]
